FAERS Safety Report 17504149 (Version 1)
Quarter: 2020Q1

REPORT INFORMATION
  Report Type: Spontaneous
  Country: US (occurrence: US)
  Receive Date: 20200305
  Receipt Date: 20200305
  Transmission Date: 20200409
  Serious: No
  Sender: FDA-Public Use
  Company Number: US-BIODELIVERY SCIENCES INTERNATIONAL-2020BDSI0043

PATIENT
  Sex: Female

DRUGS (2)
  1. SORBINICATE/CARMELLOSE SODIUM [Concomitant]
     Indication: DRY MOUTH
     Dosage: UNKNOWN, UNKNOWN
  2. BUPRENORPHINE. [Suspect]
     Active Substance: BUPRENORPHINE
     Indication: PAIN
     Route: 002
     Dates: start: 20200113

REACTIONS (4)
  - Product prescribing error [Recovered/Resolved]
  - Product solubility abnormal [Unknown]
  - Wrong technique in product usage process [Unknown]
  - Oral administration complication [Unknown]

NARRATIVE: CASE EVENT DATE: 202001
